FAERS Safety Report 4319546-X (Version None)
Quarter: 2004Q1

REPORT INFORMATION
  Report Type: 
  Country: None (occurrence: None)
  Receive Date: 20040318
  Receipt Date: 20040318
  Transmission Date: 20041129
  Serious: Yes (Disabling)
  Sender: FDA-Public Use
  Company Number: None

PATIENT
  Sex: Female
  Weight: 63.5036 kg

DRUGS (1)
  1. ZICAM LIQUID NASAL GEL ZINCUM GLUCONIUCUM 2X ZICAM LLC/MATRIXX [Suspect]
     Indication: NASOPHARYNGITIS
     Dosage: 1 SPRAY 1 TIME NASAL
     Route: 045
     Dates: start: 20030906, end: 20030906

REACTIONS (3)
  - AGEUSIA [None]
  - ANOSMIA [None]
  - APPLICATION SITE PAIN [None]
